FAERS Safety Report 8343810 (Version 3)
Quarter: 2014Q2

REPORT INFORMATION
  Report Type: Report from Study
  Country: BR (occurrence: BR)
  Receive Date: 20120119
  Receipt Date: 20140430
  Transmission Date: 20141212
  Serious: Yes (Other)
  Sender: FDA-Public Use
  Company Number: BR-ROCHE-789374

PATIENT
  Age: 50 Year
  Sex: Female
  Weight: 101 kg

DRUGS (14)
  1. MABTHERA [Suspect]
     Indication: RHEUMATOID ARTHRITIS
     Route: 042
  2. ACTEMRA [Suspect]
     Indication: RHEUMATOID ARTHRITIS
     Route: 065
     Dates: start: 20110817
  3. EUTHYROX [Concomitant]
     Route: 065
  4. VEROTINA [Concomitant]
     Route: 065
  5. RIVOTRIL [Concomitant]
     Route: 065
  6. AMITRIPTYLINE [Concomitant]
     Route: 065
  7. PROFENID [Concomitant]
     Route: 065
  8. PANTOPRAZOLE [Concomitant]
     Route: 065
  9. NIMESULIDE [Concomitant]
  10. EUTIROX [Concomitant]
  11. FLUX (FLUOXETINE) [Concomitant]
  12. GABAPENTIN [Concomitant]
  13. TYLEX (BRAZIL) [Concomitant]
     Indication: PAIN
     Route: 065
  14. CODATEN [Concomitant]

REACTIONS (7)
  - Ill-defined disorder [Unknown]
  - Weight increased [Unknown]
  - Oedema peripheral [Not Recovered/Not Resolved]
  - Sensory disturbance [Unknown]
  - Influenza [Recovered/Resolved]
  - Nausea [Unknown]
  - Nausea [Recovered/Resolved]
